FAERS Safety Report 7536238-4 (Version None)
Quarter: 2011Q2

REPORT INFORMATION
  Report Type: 
  Country: None (occurrence: None)
  Receive Date: 20110609
  Receipt Date: 20110526
  Transmission Date: 20111010
  Serious: Yes (Hospitalization)
  Sender: FDA-Public Use
  Company Number: FR-JNJFOC-20110600129

PATIENT
  Sex: Female

DRUGS (2)
  1. TRAMADOL HCL [Suspect]
     Indication: BACK PAIN
     Route: 048
     Dates: start: 20110315, end: 20110315
  2. THYROZOL [Suspect]
     Indication: HYPERTHYROIDISM
     Route: 048
     Dates: start: 20110328, end: 20110423

REACTIONS (1)
  - AGRANULOCYTOSIS [None]
